FAERS Safety Report 23055066 (Version 1)
Quarter: 2023Q4

REPORT INFORMATION
  Report Type: Spontaneous
  Country: US (occurrence: US)
  Receive Date: 20231011
  Receipt Date: 20231011
  Transmission Date: 20240110
  Serious: No
  Sender: FDA-Public Use
  Company Number: US-SANDOZ-SDZ2023US040650

PATIENT
  Sex: Female

DRUGS (1)
  1. AMPICILLIN SODIUM [Suspect]
     Active Substance: AMPICILLIN SODIUM
     Indication: Product used for unknown indication
     Dosage: 500 MG
     Route: 065

REACTIONS (4)
  - Abnormal dreams [Unknown]
  - Visual impairment [Unknown]
  - Dyspnoea [Recovering/Resolving]
  - Dizziness [Unknown]
